FAERS Safety Report 9785086 (Version 2)
Quarter: 2014Q1

REPORT INFORMATION
  Report Type: Spontaneous
  Country: BR (occurrence: BR)
  Receive Date: 20131227
  Receipt Date: 20140128
  Transmission Date: 20141002
  Serious: Yes (Other)
  Sender: FDA-Public Use
  Company Number: BR-ASTRAZENECA-2013SE92763

PATIENT
  Age: 923 Month
  Sex: Male
  Weight: 72 kg

DRUGS (6)
  1. ZOLADEX [Suspect]
     Indication: PROSTATE CANCER
     Route: 058
     Dates: start: 201308
  2. ZOLADEX [Suspect]
     Indication: PROSTATE CANCER
     Dosage: 3.6 MG MONTHLY, FIFTH APPLICATION OF ZOLADEX (PENULTIMATE APPLICATION)
     Route: 058
     Dates: start: 20140119
  3. BENICAR [Concomitant]
     Indication: HYPERTENSION
     Dosage: DAILY
     Route: 048
     Dates: start: 2011
  4. CONCOR [Concomitant]
     Indication: HYPERTENSION
     Dosage: DAILY
     Route: 048
     Dates: start: 2011
  5. CITALOPRAM [Concomitant]
     Indication: DEPRESSION
     Dosage: DAILY
     Route: 048
     Dates: start: 201306
  6. RIVOTRIL [Concomitant]
     Indication: DEPRESSION
     Dosage: DAILY
     Route: 048
     Dates: start: 201306

REACTIONS (1)
  - Haematochezia [Recovered/Resolved]
